FAERS Safety Report 9332353 (Version 5)
Quarter: 2013Q4

REPORT INFORMATION
  Report Type: Report from Study
  Country: US (occurrence: US)
  Receive Date: 20130606
  Receipt Date: 20131030
  Transmission Date: 20140711
  Serious: Yes (Hospitalization, Other)
  Sender: FDA-Public Use
  Company Number: US-ROCHE-1192866

PATIENT
  Age: 51 Year
  Sex: Male
  Weight: 90.8 kg

DRUGS (3)
  1. ZELBORAF [Suspect]
     Indication: METASTATIC MALIGNANT MELANOMA
     Route: 048
     Dates: start: 201207
  2. ZELBORAF [Suspect]
     Route: 048
     Dates: start: 20120901
  3. ZELBORAF [Suspect]
     Route: 048
     Dates: start: 20121001, end: 20131011

REACTIONS (23)
  - Brain neoplasm [Not Recovered/Not Resolved]
  - Asthenia [Recovered/Resolved]
  - Dizziness [Recovered/Resolved]
  - Abasia [Recovered/Resolved]
  - Grip strength decreased [Recovered/Resolved]
  - Squamous cell carcinoma of skin [Not Recovered/Not Resolved]
  - Renal impairment [Not Recovered/Not Resolved]
  - Swelling [Not Recovered/Not Resolved]
  - Motor dysfunction [Not Recovered/Not Resolved]
  - Diarrhoea [Not Recovered/Not Resolved]
  - Sunburn [Recovered/Resolved]
  - Mood swings [Not Recovered/Not Resolved]
  - Paralysis [Not Recovered/Not Resolved]
  - Gait disturbance [Not Recovered/Not Resolved]
  - Fall [Unknown]
  - Hemiparesis [Not Recovered/Not Resolved]
  - Brain neoplasm [Not Recovered/Not Resolved]
  - Mobility decreased [Not Recovered/Not Resolved]
  - Muscle spasms [Not Recovered/Not Resolved]
  - Brain oedema [Not Recovered/Not Resolved]
  - Weight decreased [Not Recovered/Not Resolved]
  - Blood potassium abnormal [Recovered/Resolved]
  - Blood pressure increased [Not Recovered/Not Resolved]
